FAERS Safety Report 5938217-7 (Version None)
Quarter: 2008Q4

REPORT INFORMATION
  Report Type: 
  Country: None (occurrence: None)
  Receive Date: 20081031
  Receipt Date: 20081027
  Transmission Date: 20090506
  Serious: Yes (Disabling, Other)
  Sender: FDA-Public Use
  Company Number: BE-AMGEN-UK310724

PATIENT
  Age: 37 Year
  Sex: Female

DRUGS (3)
  1. ARANESP [Suspect]
     Indication: ANAEMIA OF MALIGNANT DISEASE
     Route: 058
     Dates: start: 20080407, end: 20080428
  2. PLATINOL [Concomitant]
  3. NAVELBINE [Concomitant]

REACTIONS (1)
  - HAEMOGLOBIN DECREASED [None]
